FAERS Safety Report 9697352 (Version 1)
Quarter: 2013Q4

REPORT INFORMATION
  Report Type: Spontaneous
  Country: US (occurrence: None)
  Receive Date: 20131119
  Receipt Date: 20131119
  Transmission Date: 20140711
  Serious: Yes (Other)
  Sender: FDA-Public Use
  Company Number: None

PATIENT
  Age: 36 Year
  Sex: Female
  Weight: 83.01 kg

DRUGS (2)
  1. LIDOCAINE [Suspect]
     Indication: RADICULOPATHY
  2. METHYLPREDNISOLONE [Suspect]

REACTIONS (3)
  - Pain [None]
  - Drug effect decreased [None]
  - Body temperature increased [None]
